FAERS Safety Report 20593008 (Version 13)
Quarter: 2024Q1

REPORT INFORMATION
  Report Type: Report from Study
  Country: US (occurrence: US)
  Receive Date: 20220315
  Receipt Date: 20240319
  Transmission Date: 20240409
  Serious: Yes (Other)
  Sender: FDA-Public Use
  Company Number: US-AUROBINDO-AUR-APL-2022-007365

PATIENT
  Sex: Male

DRUGS (38)
  1. BELINOSTAT [Suspect]
     Active Substance: BELINOSTAT
     Indication: Chondrosarcoma
     Dosage: 9200 UNK
     Route: 065
     Dates: start: 20211004
  2. BELINOSTAT [Suspect]
     Active Substance: BELINOSTAT
     Dosage: 9200 UNK
     Route: 065
     Dates: start: 20211101
  3. BELINOSTAT [Suspect]
     Active Substance: BELINOSTAT
     Dosage: 9200 UNK
     Route: 065
     Dates: start: 20211129
  4. BELINOSTAT [Suspect]
     Active Substance: BELINOSTAT
     Dosage: 9200 UNK
     Route: 065
     Dates: start: 20220103
  5. BELINOSTAT [Suspect]
     Active Substance: BELINOSTAT
     Dosage: 9200 UNK
     Route: 065
     Dates: start: 20220131
  6. BELINOSTAT [Suspect]
     Active Substance: BELINOSTAT
     Dosage: 9200 UNK
     Route: 048
     Dates: start: 20220228
  7. BELINOSTAT [Suspect]
     Active Substance: BELINOSTAT
     Dosage: 9200 UNK
     Route: 065
     Dates: start: 20220328
  8. BELINOSTAT [Suspect]
     Active Substance: BELINOSTAT
     Dosage: 9200UNK
     Route: 065
     Dates: start: 20220425
  9. BELINOSTAT [Suspect]
     Active Substance: BELINOSTAT
     Dosage: 1840 UNK
     Route: 065
     Dates: start: 20220505
  10. BELINOSTAT [Suspect]
     Active Substance: BELINOSTAT
     Dosage: 7360 UNK
     Route: 065
     Dates: start: 20220620
  11. BELINOSTAT [Suspect]
     Active Substance: BELINOSTAT
     Dosage: 9200UNK
     Route: 065
     Dates: start: 20220523
  12. BELINOSTAT [Suspect]
     Active Substance: BELINOSTAT
     Dosage: 1840 UNK
     Route: 065
     Dates: start: 20220523
  13. BELINOSTAT [Suspect]
     Active Substance: BELINOSTAT
     Dosage: 7360 UNK
     Route: 065
     Dates: start: 20220523
  14. BELINOSTAT [Suspect]
     Active Substance: BELINOSTAT
     Dosage: 9200 UNK
     Route: 065
     Dates: start: 20220620
  15. BELINOSTAT [Suspect]
     Active Substance: BELINOSTAT
     Dosage: 9200 UNK
     Route: 065
     Dates: start: 20220718
  16. BELINOSTAT [Suspect]
     Active Substance: BELINOSTAT
     Dosage: 9200 UNK
     Route: 065
     Dates: start: 20220815
  17. BELINOSTAT [Suspect]
     Active Substance: BELINOSTAT
     Dosage: 9200 UNK
     Route: 065
     Dates: start: 20220912
  18. BELINOSTAT [Suspect]
     Active Substance: BELINOSTAT
     Dosage: 9200 UNK
     Route: 065
     Dates: start: 20221010
  19. CEDAZURIDINE\DECITABINE [Suspect]
     Active Substance: CEDAZURIDINE\DECITABINE
     Indication: Chondrosarcoma
     Dosage: 135 MILLIGRAM
     Route: 065
     Dates: start: 20211004
  20. CEDAZURIDINE\DECITABINE [Suspect]
     Active Substance: CEDAZURIDINE\DECITABINE
     Dosage: 135 MILLIGRAM
     Route: 065
     Dates: start: 20211101
  21. CEDAZURIDINE\DECITABINE [Suspect]
     Active Substance: CEDAZURIDINE\DECITABINE
     Dosage: 135 MILLIGRAM
     Route: 065
     Dates: start: 20211129
  22. CEDAZURIDINE\DECITABINE [Suspect]
     Active Substance: CEDAZURIDINE\DECITABINE
     Dosage: 135 UNK
     Route: 065
     Dates: start: 20220103
  23. CEDAZURIDINE\DECITABINE [Suspect]
     Active Substance: CEDAZURIDINE\DECITABINE
     Dosage: 135 UNK
     Route: 065
     Dates: start: 20220131
  24. CEDAZURIDINE\DECITABINE [Suspect]
     Active Substance: CEDAZURIDINE\DECITABINE
     Dosage: 135 UNK
     Route: 065
     Dates: start: 20220228
  25. CEDAZURIDINE\DECITABINE [Suspect]
     Active Substance: CEDAZURIDINE\DECITABINE
     Dosage: 675 UNK
     Route: 065
     Dates: start: 20220328
  26. CEDAZURIDINE\DECITABINE [Suspect]
     Active Substance: CEDAZURIDINE\DECITABINE
     Dosage: UNK
     Route: 065
     Dates: start: 20220425
  27. CEDAZURIDINE\DECITABINE [Suspect]
     Active Substance: CEDAZURIDINE\DECITABINE
     Dosage: 675 UNK
     Route: 065
     Dates: start: 20211004
  28. CEDAZURIDINE\DECITABINE [Suspect]
     Active Substance: CEDAZURIDINE\DECITABINE
     Dosage: 675 UNK
     Route: 065
     Dates: start: 20211101
  29. CEDAZURIDINE\DECITABINE [Suspect]
     Active Substance: CEDAZURIDINE\DECITABINE
     Dosage: 675 UNK
     Route: 065
     Dates: start: 20211129
  30. CEDAZURIDINE\DECITABINE [Suspect]
     Active Substance: CEDAZURIDINE\DECITABINE
     Dosage: 675 UNK
     Route: 065
     Dates: start: 20220103
  31. CEDAZURIDINE\DECITABINE [Suspect]
     Active Substance: CEDAZURIDINE\DECITABINE
     Dosage: 675 UNK
     Route: 065
     Dates: start: 20220131
  32. CEDAZURIDINE\DECITABINE [Suspect]
     Active Substance: CEDAZURIDINE\DECITABINE
     Dosage: 675 UNK
     Route: 065
     Dates: start: 20220228
  33. CEDAZURIDINE\DECITABINE [Suspect]
     Active Substance: CEDAZURIDINE\DECITABINE
     Dosage: 675 UNK
     Route: 065
     Dates: start: 20220328
  34. CEDAZURIDINE\DECITABINE [Suspect]
     Active Substance: CEDAZURIDINE\DECITABINE
     Dosage: 675 UNK
     Route: 065
     Dates: start: 20220425
  35. CEDAZURIDINE\DECITABINE [Suspect]
     Active Substance: CEDAZURIDINE\DECITABINE
     Dosage: 675 UNK
     Route: 065
     Dates: start: 20220505
  36. CEDAZURIDINE\DECITABINE [Suspect]
     Active Substance: CEDAZURIDINE\DECITABINE
     Dosage: 675 UNK
     Route: 065
     Dates: start: 20220620
  37. CEDAZURIDINE\DECITABINE [Suspect]
     Active Substance: CEDAZURIDINE\DECITABINE
     Dosage: 810 UNK
     Route: 065
     Dates: start: 20211101
  38. CEDAZURIDINE\DECITABINE [Suspect]
     Active Substance: CEDAZURIDINE\DECITABINE
     Dosage: 675 UNK
     Route: 065
     Dates: start: 20220523

REACTIONS (21)
  - Presyncope [Unknown]
  - Anaemia [Unknown]
  - Nausea [Unknown]
  - Headache [Unknown]
  - Disturbance in attention [Unknown]
  - Platelet count decreased [Unknown]
  - White blood cell count decreased [Unknown]
  - Fatigue [Unknown]
  - Decreased appetite [Unknown]
  - Constipation [Unknown]
  - Dyspepsia [Unknown]
  - Lymphocyte count decreased [Unknown]
  - Infusion related reaction [Unknown]
  - Blood bilirubin increased [Unknown]
  - Skin hyperpigmentation [Unknown]
  - Tracheal inflammation [Unknown]
  - Ear pain [Unknown]
  - Subcutaneous abscess [Unknown]
  - Hypercalcaemia [Unknown]
  - Blood creatinine increased [Unknown]
  - Hypocalcaemia [Unknown]

NARRATIVE: CASE EVENT DATE: 20211004
